FAERS Safety Report 4863996-X (Version None)
Quarter: 2005Q4

REPORT INFORMATION
  Report Type: 
  Country: None (occurrence: None)
  Receive Date: 20051222
  Receipt Date: 20051206
  Transmission Date: 20060501
  Serious: Yes (Hospitalization)
  Sender: FDA-Public Use
  Company Number: IT-BRISTOL-MYERS SQUIBB COMPANY-13205968

PATIENT
  Age: 65 Year
  Sex: Male

DRUGS (2)
  1. ABILIFY [Suspect]
     Indication: PSYCHOTIC DISORDER
     Dosage: DURATION 4-5 DAYS
     Route: 048
     Dates: start: 20051103
  2. SEROQUEL [Concomitant]
     Dates: start: 20051103

REACTIONS (9)
  - COMA [None]
  - CONSTIPATION [None]
  - ELECTROLYTE IMBALANCE [None]
  - HEPATITIS [None]
  - HYPOKINESIA [None]
  - PANCREATITIS [None]
  - PNEUMONIA ASPIRATION [None]
  - PYREXIA [None]
  - VOMITING [None]
